FAERS Safety Report 21916833 (Version 1)
Quarter: 2023Q1

REPORT INFORMATION
  Report Type: Spontaneous
  Country: None (occurrence: US)
  Receive Date: 20230126
  Receipt Date: 20230126
  Transmission Date: 20230418
  Serious: Yes (Other)
  Sender: FDA-Public Use
  Company Number: US-GREER Laboratories, Inc.-2137093

PATIENT
  Age: 16 Year
  Weight: 50.9 kg

DRUGS (13)
  1. STANDARDIZED MITE, DERMATOPHAGOIDES FARINAE [Suspect]
     Active Substance: DERMATOPHAGOIDES FARINAE
     Indication: Seasonal allergy
     Route: 058
     Dates: start: 20220329
  2. STANDARDIZED MITE, DERMATOPHAGOIDES PTERONYSSINUS [Suspect]
     Active Substance: DERMATOPHAGOIDES PTERONYSSINUS
     Route: 058
     Dates: start: 20220329
  3. STANDARDIZED CAT HAIR [Suspect]
     Active Substance: FELIS CATUS HAIR
     Route: 058
     Dates: start: 20220329
  4. ASH MIXTURE [Suspect]
     Active Substance: FRAXINUS AMERICANA POLLEN\FRAXINUS PENNSYLVANICA POLLEN
     Route: 058
     Dates: start: 20220329
  5. BOX ELDER POLLEN [Suspect]
     Active Substance: ACER NEGUNDO POLLEN
     Route: 058
     Dates: start: 20220329
  6. ELM POLLEN MIX [Suspect]
     Active Substance: ULMUS AMERICANA POLLEN\ULMUS PUMILA POLLEN
     Route: 058
     Dates: start: 20220329
  7. RED CEDAR POLLEN [Suspect]
     Active Substance: JUNIPERUS VIRGINIANA POLLEN
     Route: 058
     Dates: start: 20220329
  8. SHAGBARK HICKORY POLLEN [Suspect]
     Active Substance: CARYA OVATA POLLEN
     Route: 058
     Dates: start: 20220329
  9. BLACK LOCUST BLOSSOM [Suspect]
     Active Substance: ROBINIA PSEUDOACACIA POLLEN
     Route: 058
     Dates: start: 20220329
  10. WHITE OAK POLLEN [Suspect]
     Active Substance: QUERCUS ALBA POLLEN
     Route: 058
     Dates: start: 20220329
  11. FEXOFENADINE [Concomitant]
     Active Substance: FEXOFENADINE HYDROCHLORIDE
     Route: 048
  12. NASONEX [Concomitant]
     Active Substance: MOMETASONE FUROATE
     Route: 045
  13. PEDIATRIC MULTIVITAMIN [Concomitant]

REACTIONS (6)
  - Pruritus [Recovered/Resolved]
  - Rash [Recovered/Resolved]
  - Cough [Recovered/Resolved]
  - Dyspnoea [Recovered/Resolved]
  - Wheezing [Recovered/Resolved]
  - Eye oedema [Recovered/Resolved]

NARRATIVE: CASE EVENT DATE: 20220929
